FAERS Safety Report 6447923-X (Version None)
Quarter: 2009Q4

REPORT INFORMATION
  Report Type: 
  Country: None (occurrence: None)
  Receive Date: 20091120
  Receipt Date: 20091111
  Transmission Date: 20100525
  Serious: Yes (Other)
  Sender: FDA-Public Use
  Company Number: CA-JNJFOC-20091103617

PATIENT
  Sex: Female
  Weight: 65.32 kg

DRUGS (1)
  1. REMICADE [Suspect]
     Indication: CROHN'S DISEASE
     Route: 042
     Dates: start: 20091111, end: 20091111

REACTIONS (6)
  - COUGH [None]
  - DYSPNOEA [None]
  - HOT FLUSH [None]
  - HYPERTENSION [None]
  - INFUSION RELATED REACTION [None]
  - OXYGEN SATURATION DECREASED [None]
